FAERS Safety Report 5642193-4 (Version None)
Quarter: 2008Q1

REPORT INFORMATION
  Report Type: 
  Country: None (occurrence: None)
  Receive Date: 20080225
  Receipt Date: 20080216
  Transmission Date: 20080703
  Serious: Yes (Disabling, Other)
  Sender: FDA-Public Use
  Company Number: 2008AP000467

PATIENT
  Age: 83 Year
  Sex: Male

DRUGS (4)
  1. DILTIAZEM HYDROCHLORIDE [Suspect]
     Dosage: PO
     Route: 048
  2. ENALAPRIL MALEATE [Suspect]
     Dosage: PO
     Route: 048
  3. DILTIAZEM HYDROCHLORIDE [Concomitant]
  4. ENALAPRIL MALEATE [Concomitant]

REACTIONS (2)
  - DERMATITIS CONTACT [None]
  - REACTION TO DRUG EXCIPIENTS [None]
